FAERS Safety Report 9213194 (Version 1)
Quarter: 2013Q1

REPORT INFORMATION
  Report Type: Spontaneous
  Country: US (occurrence: None)
  Receive Date: 20120820
  Receipt Date: 20120820
  Transmission Date: 20140127
  Serious: No
  Sender: FDA-Public Use
  Company Number: 1000036999

PATIENT
  Age: 58 Year
  Sex: Female

DRUGS (4)
  1. VIIBRYD [Suspect]
     Indication: DEPRESSION
     Route: 048
     Dates: start: 20120704, end: 20120710
  2. OXYCODONE (OXYCODONE) (OXYCODONE) [Concomitant]
  3. AMBIEN (ZOLPIDEM TARTRATE) ZOLPIDEM TARTRATE) [Concomitant]
  4. VALIUM (DIAZEPAM) (DIAZEPAM) [Concomitant]

REACTIONS (2)
  - Headache [None]
  - Somnolence [None]
